FAERS Safety Report 9729510 (Version 1)
Quarter: 2013Q4

REPORT INFORMATION
  Report Type: Spontaneous
  Country: US (occurrence: US)
  Receive Date: 20131204
  Receipt Date: 20131204
  Transmission Date: 20140711
  Serious: No
  Sender: FDA-Public Use
  Company Number: US-GILEAD-2009-0022047

PATIENT
  Sex: Male

DRUGS (12)
  1. LETAIRIS [Suspect]
     Indication: PULMONARY ARTERIAL HYPERTENSION
     Route: 048
     Dates: start: 20081128
  2. REVATIO [Concomitant]
  3. COUMADIN [Concomitant]
  4. LASIX [Concomitant]
  5. NASAREL [Concomitant]
  6. WELLBUTRIN [Concomitant]
  7. TYLENOL WITH CODEINE [Concomitant]
  8. TESSALON [Concomitant]
  9. CELEXA [Concomitant]
  10. XANAX [Concomitant]
  11. PEPCID [Concomitant]
  12. POTASSIUM CHLORIDE [Concomitant]

REACTIONS (2)
  - Ear discomfort [Unknown]
  - Nasal congestion [Unknown]
